FAERS Safety Report 9292470 (Version 2)
Quarter: 2013Q2

REPORT INFORMATION
  Report Type: Report from Study
  Country: US (occurrence: US)
  Receive Date: 20130516
  Receipt Date: 20130523
  Transmission Date: 20140414
  Serious: No
  Sender: FDA-Public Use
  Company Number: US-JNJFOC-20130506430

PATIENT
  Age: 18 Year
  Sex: Male
  Weight: 66.4 kg

DRUGS (2)
  1. REMICADE [Suspect]
     Indication: INFLAMMATORY BOWEL DISEASE
     Route: 042
     Dates: start: 20090715, end: 20100719
  2. HUMIRA [Concomitant]
     Route: 065
     Dates: start: 20100821

REACTIONS (1)
  - Anal abscess [Not Recovered/Not Resolved]
